FAERS Safety Report 10082104 (Version 2)
Quarter: 2014Q2

REPORT INFORMATION
  Report Type: Report from Study
  Country: CA (occurrence: CA)
  Receive Date: 20140416
  Receipt Date: 20140630
  Transmission Date: 20141212
  Serious: Yes (Other)
  Sender: FDA-Public Use
  Company Number: CA-BRISTOL-MYERS SQUIBB COMPANY-20620886

PATIENT
  Age: 72 Year
  Sex: Male

DRUGS (13)
  1. ORENCIA [Suspect]
     Indication: RHEUMATOID ARTHRITIS
     Dosage: 1DF=1000 UNIT NOS
     Route: 042
     Dates: start: 20120514
  2. ENBREL [Concomitant]
  3. HYDROMORPH CONTIN [Concomitant]
  4. HYDROMORPHONE [Concomitant]
  5. NEXIUM [Concomitant]
  6. CIPROFLOXACIN [Concomitant]
  7. TAMSULOSIN [Concomitant]
  8. GABAPENTIN [Concomitant]
  9. RAMIPRIL [Concomitant]
  10. HYDROCHLOROTHIAZIDE [Concomitant]
  11. FOLIC ACID [Concomitant]
  12. CLARITIN [Concomitant]
  13. FERROUS SULFATE [Concomitant]

REACTIONS (2)
  - Prostatic disorder [Unknown]
  - Urinary tract infection [Unknown]
